FAERS Safety Report 5992811-6 (Version None)
Quarter: 2008Q4

REPORT INFORMATION
  Report Type: 
  Country: None (occurrence: None)
  Receive Date: 20081211
  Receipt Date: 20081126
  Transmission Date: 20090506
  Serious: Yes (Hospitalization)
  Sender: FDA-Public Use
  Company Number: SE-GENENTECH-273436

PATIENT

DRUGS (4)
  1. BEVACIZUMAB [Suspect]
     Indication: COLORECTAL CANCER
     Dosage: 509 MG, Q3W
     Route: 042
     Dates: start: 20081106
  2. ERLOTINIB [Suspect]
     Indication: COLORECTAL CANCER
     Dosage: 150 MG, QD
     Route: 048
  3. CAPECITABINE [Suspect]
     Indication: COLORECTAL CANCER METASTATIC
     Dosage: 1000 MG/M2, BID
     Route: 048
     Dates: start: 20081016, end: 20081110
  4. OXALIPLATIN [Suspect]
     Indication: COLORECTAL CANCER METASTATIC
     Dosage: 130 MG/M2, Q3W
     Route: 042
     Dates: start: 20081016

REACTIONS (2)
  - C-REACTIVE PROTEIN INCREASED [None]
  - PYREXIA [None]
